FAERS Safety Report 4809556-8 (Version None)
Quarter: 2005Q4

REPORT INFORMATION
  Report Type: 
  Country: None (occurrence: None)
  Receive Date: 20051021
  Receipt Date: 20051012
  Transmission Date: 20060501
  Serious: Yes (Death, Hospitalization, Other)
  Sender: FDA-Public Use
  Company Number: 163-20785-05060036

PATIENT
  Age: 64 Year
  Sex: Male

DRUGS (28)
  1. THALOMID [Suspect]
     Indication: MULTIPLE MYELOMA
     Dosage: 100 MG, DAILY, ORAL
     Route: 048
     Dates: start: 20050510, end: 20050501
  2. DEXAMETHASONE [Suspect]
  3. COUMADIN [Suspect]
  4. SEPTRA DS [Suspect]
  5. ZOMETA [Suspect]
     Indication: MULTIPLE MYELOMA
     Dates: start: 20050515
  6. LASIX [Concomitant]
  7. OXYCONTIN [Concomitant]
  8. OXYCODONE HCL [Concomitant]
  9. IMDUR [Concomitant]
  10. COREG [Concomitant]
  11. MEVACOR [Concomitant]
  12. PROTONIX [Concomitant]
  13. SENOKOT [Concomitant]
  14. K-TABS (POTASSIUM CHLORIDE) [Concomitant]
  15. COMBIVENT (COMBIVENT) (INHALANT) [Concomitant]
  16. ECOTRIN (ACETYLSALICYLIC ACID) (ENTERIC-COATED TABLET) [Concomitant]
  17. FLATULEX (FLUTICASONE PROPIONATE) (INHALANT) [Concomitant]
  18. HUMIBID (GUAIFENESIN) [Concomitant]
  19. LEXAPRO [Concomitant]
  20. LIDODERM (LIDOCAINE) (POULTICE OR PATCH) [Concomitant]
  21. MIRALAX [Concomitant]
  22. OSCAL (CALCIUM CARBONATE) [Concomitant]
  23. PRILOSEC [Concomitant]
  24. PROCRIT [Concomitant]
  25. SINGULAIR [Concomitant]
  26. XANAX [Concomitant]
  27. ZELNORM (TEGASSEROD) [Concomitant]
  28. ZOCOR [Concomitant]

REACTIONS (29)
  - ABDOMINAL DISTENSION [None]
  - ASTHENIA [None]
  - ATELECTASIS [None]
  - BACTERAEMIA [None]
  - BLOOD CULTURE POSITIVE [None]
  - CLAVICLE FRACTURE [None]
  - COAGULOPATHY [None]
  - CONFUSIONAL STATE [None]
  - COUGH [None]
  - DEHYDRATION [None]
  - DISEASE PROGRESSION [None]
  - DIZZINESS [None]
  - DRUG INTERACTION [None]
  - DYSPNOEA [None]
  - FAECALOMA [None]
  - INTERNATIONAL NORMALISED RATIO INCREASED [None]
  - LUNG INFILTRATION [None]
  - MALNUTRITION [None]
  - MYOCARDIAL INFARCTION [None]
  - NAUSEA [None]
  - OEDEMA PERIPHERAL [None]
  - ORAL CANDIDIASIS [None]
  - PNEUMONIA [None]
  - QRS AXIS ABNORMAL [None]
  - SINUS TACHYCARDIA [None]
  - STAPHYLOCOCCAL INFECTION [None]
  - SUPRAVENTRICULAR TACHYCARDIA [None]
  - TREMOR [None]
  - VENTRICULAR HYPERTROPHY [None]
